FAERS Safety Report 9705857 (Version 1)
Quarter: 2013Q4

REPORT INFORMATION
  Report Type: Report from Study
  Country: PK (occurrence: PK)
  Receive Date: 20131122
  Receipt Date: 20131122
  Transmission Date: 20140711
  Serious: Yes (Hospitalization, Other)
  Sender: FDA-Public Use
  Company Number: PHHY2013PK133032

PATIENT
  Age: 19 Year
  Sex: Female
  Weight: 42.5 kg

DRUGS (2)
  1. GLIVEC [Suspect]
     Indication: CHRONIC MYELOID LEUKAEMIA
     Dosage: 400 MG, QD
     Route: 048
     Dates: start: 20130812, end: 20130910
  2. OMEPRAZOLE [Concomitant]
     Indication: STRESS ULCER
     Dosage: 20 MG, QD
     Route: 048
     Dates: start: 20130815, end: 20130830

REACTIONS (7)
  - Urosepsis [Unknown]
  - Bone marrow failure [Not Recovered/Not Resolved]
  - Pancytopenia [Recovered/Resolved]
  - Thrombocytopenia [Not Recovered/Not Resolved]
  - Shock [Unknown]
  - Pyrexia [Unknown]
  - Haemorrhage [Unknown]
